APPROVED DRUG PRODUCT: METRONIDAZOLE
Active Ingredient: METRONIDAZOLE
Strength: 500MG
Dosage Form/Route: TABLET;ORAL
Application: A203974 | Product #002 | TE Code: AB
Applicant: AUROBINDO PHARMA LTD
Approved: May 29, 2015 | RLD: No | RS: Yes | Type: RX